FAERS Safety Report 4838043-6 (Version None)
Quarter: 2005Q4

REPORT INFORMATION
  Report Type: 
  Country: None (occurrence: None)
  Receive Date: 20051128
  Receipt Date: 20051123
  Transmission Date: 20060501
  Serious: Yes (Life-Threatening, Hospitalization)
  Sender: FDA-Public Use
  Company Number: FR-AVENTIS-200513832FR

PATIENT
  Age: 79 Year
  Sex: Female
  Weight: 50 kg

DRUGS (8)
  1. LASILIX [Suspect]
     Route: 048
  2. DI-ANTALVIC [Suspect]
     Route: 048
  3. FOSAMAX [Suspect]
     Indication: ARTHROPATHY
     Route: 048
  4. CELEBREX [Suspect]
     Indication: OSTEOARTHRITIS
     Dosage: DOSE UNIT: UNITS
     Route: 048
  5. MODOPAR [Suspect]
     Route: 048
  6. ASPIRIN [Suspect]
     Route: 048
  7. LUBENTYL [Concomitant]
     Route: 048
  8. HYPNOTICS NOS [Concomitant]

REACTIONS (6)
  - DYSPHAGIA [None]
  - GENERAL PHYSICAL HEALTH DETERIORATION [None]
  - SKIN NECROSIS [None]
  - SKIN NODULE [None]
  - SKIN ULCER [None]
  - STOMATITIS NECROTISING [None]
